FAERS Safety Report 14689202 (Version 1)
Quarter: 2018Q1

REPORT INFORMATION
  Report Type: Spontaneous
  Country: US (occurrence: US)
  Receive Date: 20180327
  Receipt Date: 20180327
  Transmission Date: 20180509
  Serious: Yes (Disabling, Other)
  Sender: FDA-Public Use
  Company Number: None

PATIENT
  Age: 74 Year
  Sex: Female
  Weight: 62.1 kg

DRUGS (7)
  1. PROLIA [Suspect]
     Active Substance: DENOSUMAB
     Indication: FRACTURE
     Route: 030
     Dates: start: 20171101, end: 20180323
  2. IBEPROFEN [Concomitant]
  3. BUPROPION. [Concomitant]
     Active Substance: BUPROPION
  4. TRAMSDOL [Concomitant]
  5. MIRAPIX [Concomitant]
  6. CLONAZEPAM. [Concomitant]
     Active Substance: CLONAZEPAM
  7. DOXEPIN [Concomitant]
     Active Substance: DOXEPIN

REACTIONS (3)
  - Peripheral swelling [None]
  - Visual impairment [None]
  - Gait disturbance [None]

NARRATIVE: CASE EVENT DATE: 20171101
